FAERS Safety Report 21866274 (Version 1)
Quarter: 2023Q1

REPORT INFORMATION
  Report Type: Other
  Country: CA (occurrence: CA)
  Receive Date: 20230116
  Receipt Date: 20230116
  Transmission Date: 20230418
  Serious: Yes (Other)
  Sender: FDA-Public Use
  Company Number: CA-PFIZER INC-202300016043

PATIENT
  Age: 50 Year
  Sex: Male

DRUGS (3)
  1. CARBOPLATIN [Suspect]
     Active Substance: CARBOPLATIN
     Indication: Oropharyngeal squamous cell carcinoma
     Dosage: 70 MG/M2
     Route: 065
  2. FLUOROURACIL [Suspect]
     Active Substance: FLUOROURACIL
     Indication: Oropharyngeal squamous cell carcinoma
     Dosage: 600 MG/M2, 1X/DAY
     Route: 050
  3. FLUOROURACIL [Suspect]
     Active Substance: FLUOROURACIL
     Dosage: 600 MG/M2, 1X/DAY
     Route: 041

REACTIONS (3)
  - Dysphagia [Unknown]
  - Mucosal inflammation [Unknown]
  - Off label use [Unknown]
